FAERS Safety Report 25213761 (Version 1)
Quarter: 2025Q2

REPORT INFORMATION
  Report Type: Spontaneous
  Country: CA (occurrence: CA)
  Receive Date: 20250418
  Receipt Date: 20250418
  Transmission Date: 20250717
  Serious: Yes (Other)
  Sender: PFIZER
  Company Number: CA-PFIZER INC-202500077989

PATIENT
  Age: 45 Year
  Sex: Female
  Weight: 95 kg

DRUGS (5)
  1. HYDROCORTISONE [Suspect]
     Active Substance: HYDROCORTISONE
     Route: 042
  2. INFLECTRA [Concomitant]
     Active Substance: INFLIXIMAB-DYYB
     Indication: Colitis ulcerative
     Route: 042
     Dates: start: 20240313
  3. INFLECTRA [Concomitant]
     Active Substance: INFLIXIMAB-DYYB
     Route: 042
     Dates: start: 20241204
  4. INFLECTRA [Concomitant]
     Active Substance: INFLIXIMAB-DYYB
     Route: 042
     Dates: start: 20250226
  5. PENTASA [Concomitant]
     Active Substance: MESALAMINE

REACTIONS (3)
  - Paraesthesia [Recovered/Resolved]
  - Infusion site pain [Recovered/Resolved]
  - Drug hypersensitivity [Unknown]

NARRATIVE: CASE EVENT DATE: 20250409
